FAERS Safety Report 22267019 (Version 1)
Quarter: 2023Q2

REPORT INFORMATION
  Report Type: Spontaneous
  Country: US (occurrence: None)
  Receive Date: 20230427
  Receipt Date: 20230427
  Transmission Date: 20230722
  Serious: No
  Sender: FDA-Public Use
  Company Number: None

PATIENT
  Age: 50 Year
  Sex: Female

DRUGS (1)
  1. OTEZLA [Suspect]
     Active Substance: APREMILAST
     Indication: Psoriasis
     Dosage: OTHER STRENGTH : 10/20/30;?FREQUENCY : TWICE A DAY;?
     Route: 048
     Dates: start: 20220407

REACTIONS (5)
  - Headache [None]
  - Flushing [None]
  - Musculoskeletal stiffness [None]
  - Mood swings [None]
  - Chest discomfort [None]

NARRATIVE: CASE EVENT DATE: 20230415
